FAERS Safety Report 12987623 (Version 2)
Quarter: 2017Q2

REPORT INFORMATION
  Report Type: Spontaneous
  Country: US (occurrence: US)
  Receive Date: 20161130
  Receipt Date: 20170616
  Transmission Date: 20170830
  Serious: Yes (Other)
  Sender: FDA-Public Use
  Company Number: US-BAYER-2016-223046

PATIENT
  Age: 24 Year
  Sex: Female

DRUGS (10)
  1. MOXIFLOXACIN ORAL [Suspect]
     Active Substance: MOXIFLOXACIN
     Indication: TUBERCULOSIS
     Dosage: 40 MG, UNK
  2. PYRAZINAMIDE. [Concomitant]
     Active Substance: PYRAZINAMIDE
     Dosage: UNK
  3. DIPHENHYDRAMINE. [Concomitant]
     Active Substance: DIPHENHYDRAMINE
     Dosage: 50 MG, UNK
  4. MORPHINE [Concomitant]
     Active Substance: MORPHINE
     Dosage: UNK
  5. MOXIFLOXACIN ORAL [Suspect]
     Active Substance: MOXIFLOXACIN
     Indication: TUBERCULOSIS
     Dosage: 100 MG, UNK
  6. ACETAMINOPHEN. [Concomitant]
     Active Substance: ACETAMINOPHEN
     Dosage: 1000 MG, UNK
     Route: 048
  7. ETHAMBUTOL [Concomitant]
     Active Substance: ETHAMBUTOL HYDROCHLORIDE
     Dosage: UNK
  8. ONDANSETRON [Concomitant]
     Active Substance: ONDANSETRON
     Dosage: UNK
  9. MOXIFLOXACIN ORAL [Suspect]
     Active Substance: MOXIFLOXACIN
     Indication: TUBERCULOSIS
     Dosage: 200 MG, UNK
  10. MOXIFLOXACIN ORAL [Suspect]
     Active Substance: MOXIFLOXACIN
     Indication: TUBERCULOSIS
     Dosage: 400 MG, UNK

REACTIONS (19)
  - Abdominal pain [None]
  - Defaecation urgency [None]
  - Defaecation urgency [Recovered/Resolved]
  - Drug hypersensitivity [None]
  - Eyelid oedema [None]
  - Nausea [None]
  - Motor dysfunction [None]
  - Pruritus generalised [None]
  - Pruritus [None]
  - Myalgia [None]
  - Dysmenorrhoea [None]
  - Micturition urgency [None]
  - Rash erythematous [None]
  - Flushing [None]
  - Abdominal pain [Recovered/Resolved]
  - Vomiting [None]
  - Off label use [None]
  - Rash maculo-papular [None]
  - Muscle spasms [None]
